FAERS Safety Report 8977842 (Version 10)
Quarter: 2014Q3

REPORT INFORMATION
  Report Type: Report from Study
  Country: CA (occurrence: CA)
  Receive Date: 20121220
  Receipt Date: 20140730
  Transmission Date: 20150326
  Serious: Yes (Hospitalization, Other)
  Sender: FDA-Public Use
  Company Number: CA-ROCHE-1171865

PATIENT
  Age: 64 Year
  Sex: Female

DRUGS (3)
  1. OMALIZUMAB [Suspect]
     Active Substance: OMALIZUMAB
     Route: 058
     Dates: start: 20090415
  2. OMALIZUMAB [Suspect]
     Active Substance: OMALIZUMAB
     Indication: ASTHMA
     Route: 058
     Dates: start: 20080610
  3. OMALIZUMAB [Suspect]
     Active Substance: OMALIZUMAB
     Route: 058
     Dates: start: 20140129

REACTIONS (25)
  - Erythema [Unknown]
  - Rheumatoid arthritis [Unknown]
  - Hypoaesthesia [Unknown]
  - Local swelling [Unknown]
  - Urinary tract infection [Not Recovered/Not Resolved]
  - Conjunctivitis [Recovering/Resolving]
  - Radiation skin injury [Unknown]
  - Mass [Unknown]
  - Colitis ulcerative [Unknown]
  - Hypertension [Unknown]
  - Discomfort [Unknown]
  - Gait disturbance [Unknown]
  - Nervousness [Unknown]
  - Asthenia [Unknown]
  - Nasopharyngitis [Recovering/Resolving]
  - Burning sensation [Unknown]
  - Asthma [Unknown]
  - Vaginal infection [Not Recovered/Not Resolved]
  - Influenza [Not Recovered/Not Resolved]
  - Anxiety [Unknown]
  - Cough [Unknown]
  - Pain in extremity [Unknown]
  - Arthralgia [Unknown]
  - Joint swelling [Unknown]
  - Gastroenteritis [Recovered/Resolved]

NARRATIVE: CASE EVENT DATE: 20100106
